FAERS Safety Report 21706067 (Version 1)
Quarter: 2022Q4

REPORT INFORMATION
  Report Type: Spontaneous
  Country: BE (occurrence: BE)
  Receive Date: 20221209
  Receipt Date: 20221209
  Transmission Date: 20230113
  Serious: Yes (Hospitalization, Other)
  Sender: FDA-Public Use
  Company Number: None

PATIENT
  Age: 70 Year
  Sex: Male

DRUGS (2)
  1. VICTOZA [Suspect]
     Active Substance: LIRAGLUTIDE
     Indication: Diabetes mellitus
     Dosage: 1 DF, QD(1 TIME PER DAY)
     Dates: start: 2015
  2. INSULIN NOS [Concomitant]
     Active Substance: INSULIN NOS
     Indication: Product used for unknown indication
     Dosage: INJECTING INSULIN 4X/DAY

REACTIONS (5)
  - Pancreatic failure [Not Recovered/Not Resolved]
  - Pancreatic disorder [Not Recovered/Not Resolved]
  - Hyperpyrexia [Recovered/Resolved]
  - Pancreatitis acute [Recovered/Resolved]
  - Pancreatitis necrotising [Not Recovered/Not Resolved]
